FAERS Safety Report 14239996 (Version 1)
Quarter: 2017Q4

REPORT INFORMATION
  Report Type: Spontaneous
  Country: US (occurrence: US)
  Receive Date: 20171128
  Receipt Date: 20171128
  Transmission Date: 20180321
  Serious: No
  Sender: FDA-Public Use
  Company Number: None

PATIENT

DRUGS (1)
  1. BC (ASPIRIN\CAFFEINE) [Suspect]
     Active Substance: ASPIRIN\CAFFEINE
     Indication: HEADACHE
     Dosage: 6 POWDER PACKETS; ORAL?
     Route: 048

REACTIONS (3)
  - Accidental exposure to product [None]
  - Panic reaction [None]
  - Product label issue [None]

NARRATIVE: CASE EVENT DATE: 20171107
